FAERS Safety Report 12474856 (Version 1)
Quarter: 2016Q2

REPORT INFORMATION
  Report Type: Spontaneous
  Country: US (occurrence: US)
  Receive Date: 20160617
  Receipt Date: 20160617
  Transmission Date: 20160815
  Serious: No
  Sender: FDA-Public Use
  Company Number: US-BIOGEN-2016BI00249456

PATIENT
  Sex: Female

DRUGS (1)
  1. AVONEX [Suspect]
     Active Substance: INTERFERON BETA-1A
     Indication: MULTIPLE SCLEROSIS
     Route: 065
     Dates: start: 20140802

REACTIONS (5)
  - Gait disturbance [Unknown]
  - Visual impairment [Unknown]
  - Memory impairment [Unknown]
  - Therapy cessation [Unknown]
  - Dysarthria [Unknown]
